FAERS Safety Report 15315381 (Version 1)
Quarter: 2018Q3

REPORT INFORMATION
  Report Type: Spontaneous
  Country: US (occurrence: US)
  Receive Date: 20180815
  Receipt Date: 20180815
  Transmission Date: 20181010
  Serious: Yes (Disabling, Other)
  Sender: FDA-Public Use
  Company Number: None

PATIENT
  Age: 61 Year
  Sex: Male
  Weight: 93.6 kg

DRUGS (9)
  1. FARXIGA [Suspect]
     Active Substance: DAPAGLIFLOZIN PROPANEDIOL
     Indication: DIABETES MELLITUS
     Dosage: ?          QUANTITY:30 TABLET(S);?
     Route: 048
     Dates: start: 20180216, end: 20180807
  2. OMEPRAZOLE. [Concomitant]
     Active Substance: OMEPRAZOLE
  3. CARVEDILOL. [Concomitant]
     Active Substance: CARVEDILOL
  4. METFORMIN [Concomitant]
     Active Substance: METFORMIN HYDROCHLORIDE
  5. FISH OIL [Concomitant]
     Active Substance: FISH OIL
  6. VITAMIN D [Concomitant]
     Active Substance: CHOLECALCIFEROL
  7. MULTI?VIT [Concomitant]
     Active Substance: VITAMINS
  8. PROBIOTIC [Concomitant]
     Active Substance: PROBIOTICS NOS
  9. VITAMIN B12 [Concomitant]
     Active Substance: CYANOCOBALAMIN

REACTIONS (4)
  - Hepatic enzyme increased [None]
  - Pancreatitis [None]
  - Hepatitis [None]
  - Gastrointestinal pain [None]

NARRATIVE: CASE EVENT DATE: 20180630
